FAERS Safety Report 9708162 (Version 3)
Quarter: 2014Q1

REPORT INFORMATION
  Report Type: Spontaneous
  Country: AU (occurrence: AU)
  Receive Date: 20131125
  Receipt Date: 20140116
  Transmission Date: 20141002
  Serious: Yes (Disabling)
  Sender: FDA-Public Use
  Company Number: AU-BAXTER-2013BAX045600

PATIENT
  Age: 55 Year
  Sex: Male

DRUGS (1)
  1. KIOVIG NORMAL IMMUNOGLOBULIN (HUMAN) 20G/200ML FOR INTRAVENOUS USE INJ [Suspect]
     Indication: PRODUCT USED FOR UNKNOWN INDICATION
     Route: 042
     Dates: start: 20131111, end: 20131115

REACTIONS (3)
  - Lethargy [Recovering/Resolving]
  - Influenza like illness [Recovering/Resolving]
  - Headache [Recovering/Resolving]
